FAERS Safety Report 11828145 (Version 2)
Quarter: 2016Q4

REPORT INFORMATION
  Report Type: Spontaneous
  Country: US (occurrence: US)
  Receive Date: 20151211
  Receipt Date: 20161123
  Transmission Date: 20170206
  Serious: No
  Sender: FDA-Public Use
  Company Number: US-PFIZER INC-2015392468

PATIENT
  Age: 72 Year
  Sex: Female

DRUGS (5)
  1. PENICILLIN G [Suspect]
     Active Substance: PENICILLIN G
     Dosage: UNK
  2. SILICONE [Suspect]
     Active Substance: SILICONE
     Dosage: UNK
  3. MORPHINE SULFATE. [Suspect]
     Active Substance: MORPHINE SULFATE
     Dosage: UNK
  4. OXYCODONE [Suspect]
     Active Substance: OXYCODONE
     Dosage: UNK
  5. PENICILLIN G BENZATHINE [Suspect]
     Active Substance: PENICILLIN G BENZATHINE
     Dosage: UNK

REACTIONS (1)
  - Drug hypersensitivity [Unknown]
